FAERS Safety Report 16262473 (Version 1)
Quarter: 2019Q2

REPORT INFORMATION
  Report Type: Other
  Country: GB (occurrence: GB)
  Receive Date: 20190501
  Receipt Date: 20190501
  Transmission Date: 20190711
  Serious: Yes (Life-Threatening)
  Sender: FDA-Public Use
  Company Number: GB-CELLTRION INC.-2019GB020766

PATIENT

DRUGS (1)
  1. INFLIXIMAB (UNKNOWN) [Suspect]
     Active Substance: INFLIXIMAB
     Indication: CROHN^S DISEASE
     Dosage: 500 MG, (CUMULATIVE DOSE TO FIRST REACTION:35ML, DOSE FORM:293)
     Route: 042
     Dates: start: 20190325, end: 20190325

REACTIONS (5)
  - Dyspnoea [Recovered/Resolved]
  - Rash erythematous [Recovering/Resolving]
  - Malaise [Unknown]
  - Allergic respiratory symptom [Recovered/Resolved]
  - Feeling abnormal [Unknown]

NARRATIVE: CASE EVENT DATE: 20190325
